FAERS Safety Report 4888370-1 (Version None)
Quarter: 2006Q1

REPORT INFORMATION
  Report Type: 
  Country: None (occurrence: None)
  Receive Date: 20060118
  Receipt Date: 20060106
  Transmission Date: 20060701
  Serious: Yes (Other)
  Sender: FDA-Public Use
  Company Number: FR200601001192

PATIENT
  Age: 16 Year
  Sex: Male

DRUGS (4)
  1. ZYPREXA [Suspect]
     Indication: BRIEF PSYCHOTIC DISORDER WITH MARKED STRESSORS
     Dosage: SEE IMAGE, ORAL
     Route: 048
     Dates: start: 20051128, end: 20051230
  2. ZYPREXA [Suspect]
     Indication: BRIEF PSYCHOTIC DISORDER WITH MARKED STRESSORS
     Dosage: SEE IMAGE, ORAL
     Route: 048
     Dates: start: 20051230
  3. STILNOX (ZOLPIDEM) [Concomitant]
  4. XANAX [Concomitant]

REACTIONS (1)
  - NEUTROPENIA [None]
